FAERS Safety Report 17563180 (Version 1)
Quarter: 2020Q1

REPORT INFORMATION
  Report Type: Spontaneous
  Country: US (occurrence: US)
  Receive Date: 20200320
  Receipt Date: 20200320
  Transmission Date: 20200409
  Serious: No
  Sender: FDA-Public Use
  Company Number: NVSC2020US079386

PATIENT
  Sex: Male

DRUGS (1)
  1. COSENTYX [Suspect]
     Active Substance: SECUKINUMAB
     Indication: PSORIATIC ARTHROPATHY
     Dosage: 150 MG, OTHER (150MG Q WEEKLY X 5 WEEKS THEN)
     Route: 058
     Dates: start: 20200226

REACTIONS (2)
  - Rash pruritic [Unknown]
  - Dry skin [Unknown]
